APPROVED DRUG PRODUCT: DAPSONE
Active Ingredient: DAPSONE
Strength: 5%
Dosage Form/Route: GEL;TOPICAL
Application: A215087 | Product #001
Applicant: PADAGIS ISRAEL PHARMACEUTICALS LTD
Approved: Oct 31, 2023 | RLD: No | RS: No | Type: DISCN